FAERS Safety Report 5073306-3 (Version None)
Quarter: 2006Q3

REPORT INFORMATION
  Report Type: 
  Country: None (occurrence: None)
  Receive Date: 20060808
  Receipt Date: 20060404
  Transmission Date: 20061208
  Serious: Yes (Hospitalization, Other)
  Sender: FDA-Public Use
  Company Number: US-BAYER-200612313BWH

PATIENT
  Age: 54 Year
  Sex: Male
  Weight: 59 kg

DRUGS (5)
  1. SORAFENIB [Suspect]
     Indication: GASTROINTESTINAL STROMAL TUMOUR
     Dosage: TOTAL DAILY DOSE: 200 MG  UNIT DOSE: 200 MG
     Route: 048
     Dates: start: 20060201
  2. SORAFENIB [Suspect]
     Dosage: TOTAL DAILY DOSE: 800 MG  UNIT DOSE: 200 MG
     Route: 048
     Dates: start: 20060101
  3. SORAFENIB [Suspect]
     Route: 048
  4. DURAGESIC-100 [Concomitant]
     Indication: PAIN
     Route: 062
  5. LOVENOX [Concomitant]
     Indication: DEEP VEIN THROMBOSIS

REACTIONS (8)
  - ABSCESS [None]
  - DECUBITUS ULCER [None]
  - DEEP VEIN THROMBOSIS [None]
  - DISEASE PROGRESSION [None]
  - DRUG DOSE OMISSION [None]
  - HYPOTRICHOSIS [None]
  - NAUSEA [None]
  - VOMITING [None]
